FAERS Safety Report 13412712 (Version 3)
Quarter: 2023Q1

REPORT INFORMATION
  Report Type: Spontaneous
  Country: US (occurrence: US)
  Receive Date: 20170406
  Receipt Date: 20230215
  Transmission Date: 20230417
  Serious: No
  Sender: FDA-Public Use
  Company Number: US-JNJFOC-20170308755

PATIENT
  Sex: Male

DRUGS (14)
  1. RISPERDAL [Suspect]
     Active Substance: RISPERIDONE
     Indication: Bipolar disorder
     Route: 048
     Dates: start: 20000701
  2. RISPERDAL [Suspect]
     Active Substance: RISPERIDONE
     Indication: Depression
     Dosage: AT VARYING DOSES OF 0.25 MG TO 0.5 MG AT BED TIME
     Route: 048
     Dates: start: 20000716, end: 20001020
  3. RISPERDAL [Suspect]
     Active Substance: RISPERIDONE
     Indication: Attention deficit hyperactivity disorder
     Route: 048
     Dates: start: 20010621
  4. RISPERDAL [Suspect]
     Active Substance: RISPERIDONE
     Indication: Mood altered
     Dosage: AT VARYING DOSES OF 0.25 MG TO 2 MG
     Route: 048
     Dates: start: 20050323, end: 20080303
  5. RISPERDAL [Suspect]
     Active Substance: RISPERIDONE
     Route: 048
     Dates: start: 20080407
  6. RISPERDAL [Suspect]
     Active Substance: RISPERIDONE
     Dosage: IN THE MORNING
     Route: 048
     Dates: start: 20090930
  7. RISPERDAL [Suspect]
     Active Substance: RISPERIDONE
     Dosage: AT BED TIME
     Route: 048
     Dates: start: 20100310
  8. RISPERDAL [Suspect]
     Active Substance: RISPERIDONE
     Route: 048
     Dates: start: 20100920
  9. RISPERDAL [Suspect]
     Active Substance: RISPERIDONE
     Route: 048
     Dates: start: 20101117
  10. RISPERDAL [Suspect]
     Active Substance: RISPERIDONE
     Route: 048
     Dates: start: 20101121, end: 20101122
  11. RISPERIDONE [Suspect]
     Active Substance: RISPERIDONE
     Indication: Depression
     Route: 065
     Dates: start: 20091008, end: 20091210
  12. RISPERIDONE [Suspect]
     Active Substance: RISPERIDONE
     Route: 065
     Dates: start: 20100106, end: 20100203
  13. RISPERIDONE [Suspect]
     Active Substance: RISPERIDONE
     Route: 065
     Dates: start: 20100407, end: 20100729
  14. RISPERIDONE [Suspect]
     Active Substance: RISPERIDONE
     Route: 065
     Dates: start: 20101022

REACTIONS (2)
  - Emotional disorder [Unknown]
  - Gynaecomastia [Unknown]
